FAERS Safety Report 8964548 (Version 2)
Quarter: 2013Q1

REPORT INFORMATION
  Report Type: Report from Study
  Country: US (occurrence: US)
  Receive Date: 20121213
  Receipt Date: 20130201
  Transmission Date: 20140127
  Serious: Yes (Life-Threatening, Hospitalization)
  Sender: FDA-Public Use
  Company Number: US-MERCK-1212USA004094

PATIENT
  Age: 78 Year
  Sex: Male
  Weight: 77.1 kg

DRUGS (29)
  1. AZACITIDINE [Suspect]
     Indication: MYELODYSPLASTIC SYNDROME
     Dosage: 300 MG ON DAYS 3-9 (CYCLE OF 28 DAYS)
     Route: 048
     Dates: start: 20120827
  2. LENALIDOMIDE [Suspect]
     Indication: MYELODYSPLASTIC SYNDROME
     Dosage: 300 MG ON DAYS 3-9 (CYCLE OF 28 DAYS)
     Route: 048
     Dates: start: 20120827
  3. BLINDED PLACEBO [Suspect]
     Indication: MYELODYSPLASTIC SYNDROME
     Dosage: 300 MG ON DAYS 3-9 (CYCLE OF 28 DAYS)
     Route: 048
     Dates: start: 20120827
  4. BLINDED POST TRIAL THERAPY [Suspect]
     Indication: MYELODYSPLASTIC SYNDROME
     Dosage: 300 MG ON DAYS 3-9 (CYCLE OF 28 DAYS)
     Route: 048
     Dates: start: 20120827
  5. BLINDED PRE TRIAL THERAPY [Suspect]
     Indication: MYELODYSPLASTIC SYNDROME
     Dosage: 300 MG ON DAYS 3-9 (CYCLE OF 28 DAYS)
     Route: 048
     Dates: start: 20120827
  6. BLINDED VORINOSTAT [Suspect]
     Indication: MYELODYSPLASTIC SYNDROME
     Dosage: 300 MG ON DAYS 3-9 (CYCLE OF 28 DAYS)
     Route: 048
     Dates: start: 20120827
  7. AZACITIDINE [Suspect]
     Dosage: 300 MG ON DAYS 3-9 (CYCLE 28 DAYS)
     Route: 048
     Dates: start: 20121024, end: 20121030
  8. LENALIDOMIDE [Suspect]
     Dosage: 300 MG ON DAYS 3-9 (CYCLE 28 DAYS)
     Route: 048
     Dates: start: 20121024, end: 20121030
  9. BLINDED PLACEBO [Suspect]
     Dosage: 300 MG ON DAYS 3-9 (CYCLE 28 DAYS)
     Route: 048
     Dates: start: 20121024, end: 20121030
  10. BLINDED POST TRIAL THERAPY [Suspect]
     Dosage: 300 MG ON DAYS 3-9 (CYCLE 28 DAYS)
     Route: 048
     Dates: start: 20121024, end: 20121030
  11. BLINDED PRE TRIAL THERAPY [Suspect]
     Dosage: 300 MG ON DAYS 3-9 (CYCLE 28 DAYS)
     Route: 048
     Dates: start: 20121024, end: 20121030
  12. BLINDED VORINOSTAT [Suspect]
     Dosage: 300 MG ON DAYS 3-9 (CYCLE 28 DAYS)
     Route: 048
     Dates: start: 20121024, end: 20121030
  13. AZACITIDINE [Suspect]
     Dosage: 300 MG ON DAYS 3-9 (CYCLE 28 DAYS)
     Route: 048
     Dates: start: 20121225
  14. LENALIDOMIDE [Suspect]
     Dosage: 300 MG ON DAYS 3-9 (CYCLE 28 DAYS)
     Route: 048
     Dates: start: 20121225
  15. BLINDED PLACEBO [Suspect]
     Dosage: 300 MG ON DAYS 3-9 (CYCLE 28 DAYS)
     Route: 048
     Dates: start: 20121225
  16. BLINDED POST TRIAL THERAPY [Suspect]
     Dosage: 300 MG ON DAYS 3-9 (CYCLE 28 DAYS)
     Route: 048
     Dates: start: 20121225
  17. BLINDED PRE TRIAL THERAPY [Suspect]
     Dosage: 300 MG ON DAYS 3-9 (CYCLE 28 DAYS)
     Route: 048
     Dates: start: 20121225
  18. BLINDED VORINOSTAT [Suspect]
     Dosage: 300 MG ON DAYS 3-9 (CYCLE 28 DAYS)
     Route: 048
     Dates: start: 20121225
  19. AZACITIDINE [Suspect]
     Indication: MYELODYSPLASTIC SYNDROME
     Dosage: 75 MG/M2 SQ OR IV ON DAYS 1-7 OR 75 MG/M2 SQ OR IV ON DAYS 1-5 AND DAYS 8-9  CYCLE:28 DAYS
     Dates: start: 20120827
  20. AZACITIDINE [Suspect]
     Dosage: 75 MG/M2 SQ OR IV ON DAYS 1-7 OR 75 MG/M2 SQ OR IV ON DAYS 1-5 AND DAYS 8-9  CYCLE OF 28 DAYS
     Dates: start: 20121022, end: 20121030
  21. AZACITIDINE [Suspect]
     Dosage: 75 MG/M2 SQ OR IV ON DAYS 1-7 OR 75 MG/M2 SQ OR IV ON DAYS 1-5 AND DAYS 8-9  CYCLE OF 28 DAYS
     Dates: start: 20121226
  22. CIPRO [Concomitant]
  23. COMPAZINE [Concomitant]
  24. LIPITOR [Concomitant]
  25. ZOFRAN [Concomitant]
  26. ACYCLOVIR [Concomitant]
  27. FLUCONAZOLE [Concomitant]
  28. CYANOCOBALAMIN [Concomitant]
  29. ATIVAN [Concomitant]

REACTIONS (5)
  - White blood cell count decreased [Recovered/Resolved]
  - Dehydration [Recovered/Resolved with Sequelae]
  - Neutrophil count decreased [Recovered/Resolved with Sequelae]
  - Platelet count decreased [Recovered/Resolved with Sequelae]
  - Influenza [Recovered/Resolved with Sequelae]
